FAERS Safety Report 4553369-1 (Version None)
Quarter: 2005Q1

REPORT INFORMATION
  Report Type: 
  Country: None (occurrence: None)
  Receive Date: 20050112
  Receipt Date: 20041222
  Transmission Date: 20050727
  Serious: Yes (Hospitalization)
  Sender: FDA-Public Use
  Company Number: JP_050105549

PATIENT
  Age: 68 Year
  Sex: Male

DRUGS (3)
  1. GEMZAR [Suspect]
     Indication: PANCREATIC CARCINOMA
  2. RADIATION THERAPY [Concomitant]
  3. ORAL DRUG FOR DIABETES MELLITUS [Concomitant]

REACTIONS (4)
  - DEEP VEIN THROMBOSIS [None]
  - LUNG DISORDER [None]
  - PULMONARY EMBOLISM [None]
  - THROMBOSIS [None]
